FAERS Safety Report 9559393 (Version 1)
Quarter: 2013Q3

REPORT INFORMATION
  Report Type: Spontaneous
  Country: US (occurrence: None)
  Receive Date: 20130924
  Receipt Date: 20130924
  Transmission Date: 20140515
  Serious: Yes (Hospitalization)
  Sender: FDA-Public Use
  Company Number: FK201304348

PATIENT
  Age: 54 Year
  Sex: Male

DRUGS (4)
  1. FLUOROURACIL (MANUFACTURER UNNKOWN) (FLUOROURACIL) (FLUOROURACIL) [Suspect]
     Indication: COLON CANCER STAGE III
     Dosage: PER 24 HOURS
  2. XELODA (CAPECITABINE) [Suspect]
     Indication: COLON CANCER STAGE III
     Dosage: PER 24 HOURS
  3. OXALIPLATIN (OXALIPLATIN) [Concomitant]
  4. LEUCOVORIN (CALCIUM FOLINATE) [Concomitant]

REACTIONS (1)
  - Cardiotoxicity [None]
